FAERS Safety Report 10567490 (Version 1)
Quarter: 2014Q4

REPORT INFORMATION
  Report Type: Spontaneous
  Country: US (occurrence: None)
  Receive Date: 20141105
  Receipt Date: 20141105
  Transmission Date: 20150529
  Serious: Yes (Death, Life-Threatening, Hospitalization)
  Sender: FDA-Public Use
  Company Number: None

PATIENT
  Age: 69 Year
  Sex: Female
  Weight: 72.5 kg

DRUGS (1)
  1. DABIGATRAN 150MG BOEHRINGER INGELHEIM PHARMACEUTICAL [Suspect]
     Active Substance: DABIGATRAN
     Indication: ATRIAL FIBRILLATION
     Dosage: 1 TABLET, BID, ORAL
     Route: 048
     Dates: start: 20140201, end: 20140906

REACTIONS (15)
  - Pallor [None]
  - Tension [None]
  - Ejection fraction decreased [None]
  - Peripheral arterial occlusive disease [None]
  - Hypotension [None]
  - Cardiac arrest [None]
  - General physical health deterioration [None]
  - Nasopharyngitis [None]
  - Skin discolouration [None]
  - Renal infarct [None]
  - Urine output decreased [None]
  - Tachycardia [None]
  - Pyrexia [None]
  - Pulse absent [None]
  - Pulmonary arterial pressure increased [None]

NARRATIVE: CASE EVENT DATE: 20140906
